FAERS Safety Report 19464119 (Version 4)
Quarter: 2021Q3

REPORT INFORMATION
  Report Type: Spontaneous
  Country: RO (occurrence: RO)
  Receive Date: 20210627
  Receipt Date: 20210722
  Transmission Date: 20211014
  Serious: Yes (Hospitalization, Other)
  Sender: FDA-Public Use
  Company Number: RO-ADVANZ PHARMA-202106004487

PATIENT

DRUGS (5)
  1. HYDROXYCHLOROQUINE [Suspect]
     Active Substance: HYDROXYCHLOROQUINE
     Indication: SYSTEMIC LUPUS ERYTHEMATOSUS
     Dosage: 1 DOSAGE FORM, QD (1 TABLET IN EVENING) (PLAQUENIL)
     Route: 065
     Dates: start: 2019
  2. HYDROXYCHLOROQUINE [Suspect]
     Active Substance: HYDROXYCHLOROQUINE
     Dosage: 1 DOSAGE FORM, QD (1 TABLET IN EVENING) (PLAQUENIL)
     Route: 065
     Dates: start: 2020, end: 202106
  3. ROSUCARD [Concomitant]
     Active Substance: ROSUVASTATIN CALCIUM
     Dosage: UNK
  4. VESSEL DUE [Concomitant]
     Active Substance: SULODEXIDE
     Dosage: UNK
  5. OMNIC TOCAS [Concomitant]
     Active Substance: TAMSULOSIN HYDROCHLORIDE
     Dosage: UNK

REACTIONS (16)
  - Ocular hyperaemia [Unknown]
  - Condition aggravated [Unknown]
  - Diarrhoea [Unknown]
  - Constipation [Unknown]
  - Haemorrhage [Recovered/Resolved]
  - Memory impairment [Not Recovered/Not Resolved]
  - Visual impairment [Unknown]
  - Mobility decreased [Not Recovered/Not Resolved]
  - Eye disorder [Unknown]
  - Pollakiuria [Not Recovered/Not Resolved]
  - Haematochezia [Recovered/Resolved]
  - Eye pain [Recovered/Resolved]
  - Muscle spasms [Not Recovered/Not Resolved]
  - Pain [Not Recovered/Not Resolved]
  - Cataract [Not Recovered/Not Resolved]
  - Decreased appetite [Not Recovered/Not Resolved]
